FAERS Safety Report 4404794-0 (Version None)
Quarter: 2004Q3

REPORT INFORMATION
  Report Type: 
  Country: None (occurrence: None)
  Receive Date: 20040722
  Receipt Date: 20040719
  Transmission Date: 20050211
  Serious: Yes (Other)
  Sender: FDA-Public Use
  Company Number: GB-BRISTOL-MYERS SQUIBB COMPANY-12643656

PATIENT
  Age: 25 Year
  Sex: Female
  Weight: 52 kg

DRUGS (5)
  1. EFAVIRENZ [Suspect]
     Indication: HIV INFECTION
     Route: 048
     Dates: start: 20040512, end: 20040609
  2. COMBIVIR [Concomitant]
     Indication: HIV INFECTION
     Route: 048
     Dates: start: 20040512, end: 20040621
  3. PYRIDOXINE [Concomitant]
     Indication: NEUROPATHY
     Route: 048
     Dates: start: 20040131
  4. RIFAMPIN AND ISONIAZID [Concomitant]
     Indication: TUBERCULOSIS
     Route: 048
     Dates: start: 20040401
  5. CO-TRIMOXAZOLE [Concomitant]
     Indication: INFECTION PROPHYLAXIS
     Dosage: MON, WED, AND FRI
     Route: 048
     Dates: start: 20040203

REACTIONS (4)
  - HEPATITIS [None]
  - NAUSEA [None]
  - NEUTROPENIA [None]
  - VOMITING [None]
